FAERS Safety Report 5618816-2 (Version None)
Quarter: 2008Q1

REPORT INFORMATION
  Report Type: 
  Country: None (occurrence: None)
  Receive Date: 20080207
  Receipt Date: 20080128
  Transmission Date: 20080703
  Serious: Yes (Hospitalization)
  Sender: FDA-Public Use
  Company Number: FR-PFIZER INC-2008009511

PATIENT
  Sex: Female

DRUGS (3)
  1. LYRICA [Suspect]
     Dosage: DAILY DOSE:500MG
  2. ISOPTIN [Concomitant]
  3. DIGOXIN [Concomitant]

REACTIONS (9)
  - ARTHRITIS [None]
  - BRADYCARDIA [None]
  - CARDIAC FAILURE [None]
  - HYPERKALAEMIA [None]
  - INTERVERTEBRAL DISC COMPRESSION [None]
  - PYELONEPHRITIS [None]
  - RENAL FAILURE ACUTE [None]
  - SINUS ARRHYTHMIA [None]
  - URINARY TRACT INFECTION [None]
